FAERS Safety Report 8806906 (Version 1)
Quarter: 2012Q4

REPORT INFORMATION
  Report Type: 
  Country: US (occurrence: US)
  Receive Date: 20120925
  Receipt Date: 20120925
  Transmission Date: 20130627
  Serious: Yes (Death)
  Sender: FDA-Public Use
  Company Number: US-ROCHE-1091196

PATIENT
  Sex: Male

DRUGS (1)
  1. AVASTIN [Suspect]
     Indication: LUNG NEOPLASM MALIGNANT
     Route: 042
     Dates: start: 20080911, end: 20090119

REACTIONS (4)
  - Lung neoplasm malignant [Fatal]
  - Neuropathy peripheral [Unknown]
  - White blood cell count increased [Unknown]
  - Fatigue [Unknown]
